FAERS Safety Report 15322943 (Version 9)
Quarter: 2018Q4

REPORT INFORMATION
  Report Type: Report from Study
  Country: CZ (occurrence: CZ)
  Receive Date: 20180827
  Receipt Date: 20181026
  Transmission Date: 20190204
  Serious: Yes (Hospitalization)
  Sender: FDA-Public Use
  Company Number: CZ-EISAI MEDICAL RESEARCH-EC-2018-044447

PATIENT
  Age: 64 Year
  Sex: Female
  Weight: 57 kg

DRUGS (12)
  1. DEGAN [Concomitant]
     Active Substance: METOCLOPRAMIDE HYDROCHLORIDE
  2. LENVATINIB [Suspect]
     Active Substance: LENVATINIB
     Indication: CLEAR CELL RENAL CELL CARCINOMA
     Route: 048
     Dates: start: 20180711, end: 20180822
  3. EVEROLIMUS. [Suspect]
     Active Substance: EVEROLIMUS
     Route: 048
     Dates: start: 20181005
  4. REASEC [Concomitant]
     Active Substance: ATROPINE SULFATE\DIPHENOXYLATE HYDROCHLORIDE
  5. LENVATINIB [Suspect]
     Active Substance: LENVATINIB
     Route: 048
     Dates: start: 20180914, end: 20180930
  6. EVEROLIMUS. [Suspect]
     Active Substance: EVEROLIMUS
     Route: 048
     Dates: start: 20180914, end: 20180930
  7. NEUROL [Concomitant]
  8. LENVATINIB [Suspect]
     Active Substance: LENVATINIB
     Route: 048
     Dates: start: 20181005
  9. ASENTRA [Concomitant]
     Active Substance: SERTRALINE HYDROCHLORIDE
  10. NOVETRON [Concomitant]
  11. EVEROLIMUS. [Suspect]
     Active Substance: EVEROLIMUS
     Indication: CLEAR CELL RENAL CELL CARCINOMA
     Route: 048
     Dates: start: 20180711, end: 20180822
  12. AMLODIPINE [Concomitant]
     Active Substance: AMLODIPINE BESYLATE

REACTIONS (3)
  - Cholecystitis infective [Recovered/Resolved]
  - Dehydration [Recovered/Resolved]
  - Mucosal toxicity [Recovered/Resolved]

NARRATIVE: CASE EVENT DATE: 20180823
